FAERS Safety Report 21950449 (Version 1)
Quarter: 2023Q1

REPORT INFORMATION
  Report Type: Spontaneous
  Country: DE (occurrence: DE)
  Receive Date: 20230203
  Receipt Date: 20230203
  Transmission Date: 20230417
  Serious: Yes (Hospitalization)
  Sender: FDA-Public Use
  Company Number: DE-NOVOPROD-1018017

PATIENT
  Age: 23 Year
  Sex: Female

DRUGS (3)
  1. LEVEMIR [Suspect]
     Active Substance: INSULIN DETEMIR
     Indication: Type 1 diabetes mellitus
     Dosage: 23 IU, QD (13IU-0-10IU)
  2. LEVEMIR [Suspect]
     Active Substance: INSULIN DETEMIR
     Dosage: 13 IU, QD (5IU-0-8IU)
  3. INSULIN LISPRO [Concomitant]
     Active Substance: INSULIN LISPRO
     Indication: Type 1 diabetes mellitus
     Dosage: UNK

REACTIONS (3)
  - Premature delivery [Recovered/Resolved]
  - Euglycaemic diabetic ketoacidosis [Unknown]
  - Maternal exposure during pregnancy [Recovered/Resolved]
